FAERS Safety Report 17299329 (Version 1)
Quarter: 2020Q1

REPORT INFORMATION
  Report Type: Spontaneous
  Country: US (occurrence: US)
  Receive Date: 20200121
  Receipt Date: 20200121
  Transmission Date: 20200409
  Serious: No
  Sender: FDA-Public Use
  Company Number: US-TEIKOKU PHARMA USA-TPU2019-00859

PATIENT
  Sex: Female
  Weight: 77.18 kg

DRUGS (7)
  1. VITAMIN D [Concomitant]
     Active Substance: VITAMIN D NOS
     Indication: VITAMIN D DEFICIENCY
  2. CBD OIL [Concomitant]
     Active Substance: CANNABIDIOL\HERBALS
     Indication: PAIN
  3. RITA AID SINUS AND ALLERGY RELIEF [Concomitant]
     Indication: HYPERSENSITIVITY
  4. MOTRIN [Concomitant]
     Active Substance: IBUPROFEN
     Indication: PAIN
  5. LIDODERM [Suspect]
     Active Substance: LIDOCAINE
     Indication: BACK PAIN
     Route: 061
  6. LIDODERM [Suspect]
     Active Substance: LIDOCAINE
     Indication: BRACHIAL PLEXOPATHY
  7. LIDODERM [Suspect]
     Active Substance: LIDOCAINE
     Indication: MYOFASCIAL PAIN SYNDROME

REACTIONS (2)
  - Drug ineffective for unapproved indication [Unknown]
  - Expired product administered [Recovered/Resolved]

NARRATIVE: CASE EVENT DATE: 2019
